FAERS Safety Report 10530949 (Version 1)
Quarter: 2014Q4

REPORT INFORMATION
  Report Type: Spontaneous
  Country: US (occurrence: None)
  Receive Date: 20141020
  Receipt Date: 20141020
  Transmission Date: 20150528
  Serious: Yes (Hospitalization)
  Sender: FDA-Public Use
  Company Number: None

PATIENT
  Age: 81 Year
  Sex: Male
  Weight: 91.8 kg

DRUGS (1)
  1. ASPIRIN. [Suspect]
     Active Substance: ASPIRIN
     Indication: CARDIAC FAILURE CONGESTIVE
     Route: 048
     Dates: start: 20140422, end: 20140911

REACTIONS (5)
  - Haematuria [None]
  - Condition aggravated [None]
  - Flank pain [None]
  - Anaemia [None]
  - Cystitis haemorrhagic [None]

NARRATIVE: CASE EVENT DATE: 20140911
